FAERS Safety Report 25290537 (Version 1)
Quarter: 2025Q2

REPORT INFORMATION
  Report Type: Spontaneous
  Country: BG (occurrence: BG)
  Receive Date: 20250510
  Receipt Date: 20250510
  Transmission Date: 20250717
  Serious: Yes (Other)
  Sender: AZURITY PHARMACEUTICALS
  Company Number: BG-AZURITY PHARMACEUTICALS, INC.-AZR202504-001224

PATIENT
  Age: 52 Year
  Sex: Male

DRUGS (7)
  1. AMLODIPINE [Suspect]
     Active Substance: AMLODIPINE BESYLATE
     Indication: Hypertension
     Route: 065
     Dates: start: 2021
  2. MOXONIDINE [Suspect]
     Active Substance: MOXONIDINE
     Indication: Hypertension
     Route: 065
     Dates: start: 2021
  3. HYDROCHLOROTHIAZIDE [Suspect]
     Active Substance: HYDROCHLOROTHIAZIDE
     Indication: Hypertension
     Route: 065
     Dates: start: 2021
  4. HYDROCHLOROTHIAZIDE [Suspect]
     Active Substance: HYDROCHLOROTHIAZIDE
     Route: 065
     Dates: start: 20230401
  5. VALSARTAN [Suspect]
     Active Substance: VALSARTAN
     Indication: Hypertension
     Route: 065
     Dates: start: 20230401
  6. RILMENIDINE [Suspect]
     Active Substance: RILMENIDINE
     Indication: Hypertension
     Dates: start: 20230401
  7. RANITIDINE [Concomitant]
     Active Substance: RANITIDINE
     Indication: Product used for unknown indication
     Route: 065

REACTIONS (2)
  - Malignant melanoma [Recovered/Resolved]
  - Dysplastic naevus [Recovered/Resolved]
